FAERS Safety Report 9910203 (Version 1)
Quarter: 2014Q1

REPORT INFORMATION
  Report Type: Spontaneous
  Country: IR (occurrence: IR)
  Receive Date: 20140219
  Receipt Date: 20140219
  Transmission Date: 20141002
  Serious: Yes (Hospitalization, Other)
  Sender: FDA-Public Use
  Company Number: IR-WATSON-2014-02516

PATIENT
  Age: 27 Year
  Sex: Female

DRUGS (3)
  1. CITALOPRAM (UNKNOWN) [Suspect]
     Indication: PANIC ATTACK
     Dosage: 20 MG, DAILY
     Route: 065
  2. RIFAMPIN [Interacting]
     Indication: BRUCELLOSIS
     Dosage: 600 MG, DAILY
     Route: 048
  3. DOXYCYCLINE [Concomitant]
     Indication: BRUCELLOSIS
     Dosage: 100 MG, BID
     Route: 048

REACTIONS (3)
  - Panic attack [Recovered/Resolved]
  - Condition aggravated [Recovered/Resolved]
  - Drug interaction [Unknown]
